FAERS Safety Report 24320893 (Version 2)
Quarter: 2024Q3

REPORT INFORMATION
  Report Type: Spontaneous
  Country: US (occurrence: US)
  Receive Date: 20240915
  Receipt Date: 20240917
  Transmission Date: 20241017
  Serious: No
  Sender: SUNOVION
  Company Number: US-SUMITOMO PHARMA SWITZERLAND GMBH-2024SPA001639

PATIENT

DRUGS (1)
  1. GEMTESA [Suspect]
     Active Substance: VIBEGRON
     Indication: Urinary incontinence
     Dosage: 75 MG, QD
     Route: 048

REACTIONS (7)
  - Stress urinary incontinence [Unknown]
  - Drug ineffective [Unknown]
  - Product shape issue [Unknown]
  - Product taste abnormal [Unknown]
  - Product size issue [Unknown]
  - Product colour issue [Unknown]
  - Product packaging issue [Unknown]
